FAERS Safety Report 5892303-9 (Version None)
Quarter: 2008Q3

REPORT INFORMATION
  Report Type: 
  Country: None (occurrence: None)
  Receive Date: 20080919
  Receipt Date: 20080916
  Transmission Date: 20090109
  Serious: No
  Sender: FDA-Public Use
  Company Number: C-08-0047-W

PATIENT
  Age: 57 Year
  Sex: Male
  Weight: 94.8018 kg

DRUGS (4)
  1. LISINOPRIL [Suspect]
     Indication: HYPERTENSION
     Dosage: 1 TABLET / TWICE PER DAY
     Dates: start: 20080301, end: 20080914
  2. HYDROCODONE BITARTRATE [Concomitant]
  3. AMLODIPINE [Concomitant]
  4. VALIUM [Concomitant]

REACTIONS (5)
  - COUGH [None]
  - DRUG INEFFECTIVE [None]
  - OEDEMA PERIPHERAL [None]
  - SLEEP DISORDER [None]
  - VOMITING [None]
